FAERS Safety Report 6241297-5 (Version None)
Quarter: 2009Q2

REPORT INFORMATION
  Report Type: 
  Country: None (occurrence: None)
  Receive Date: 20090623
  Receipt Date: 20080508
  Transmission Date: 20091009
  Serious: Yes (Other)
  Sender: FDA-Public Use
  Company Number: US-BRISTOL-MYERS SQUIBB COMPANY-14188296

PATIENT
  Age: 73 Year
  Sex: Male

DRUGS (3)
  1. PRINIVIL [Suspect]
     Indication: DIABETES MELLITUS
     Route: 048
     Dates: start: 20030225, end: 20070720
  2. POTASSIUM CHLORIDE [Suspect]
     Indication: PAIN
     Route: 048
     Dates: start: 20050715, end: 20070720
  3. POTASSIUM CHLORIDE [Suspect]
     Indication: HYPOKALAEMIA
     Route: 048
     Dates: start: 20050715, end: 20070720

REACTIONS (1)
  - HYPERKALAEMIA [None]
